FAERS Safety Report 12313612 (Version 1)
Quarter: 2016Q2

REPORT INFORMATION
  Report Type: Spontaneous
  Country: None (occurrence: None)
  Receive Date: 20160427
  Receipt Date: 20160427
  Transmission Date: 20160815
  Serious: No
  Sender: FDA-Public Use
  Company Number: None

PATIENT
  Age: 79 Year
  Sex: Female
  Weight: 195 kg

DRUGS (10)
  1. LOSARTIN [Concomitant]
     Active Substance: LOSARTAN
  2. IRON [Concomitant]
     Active Substance: IRON
  3. LETCHIN [Concomitant]
  4. SIMVASTATIN. [Concomitant]
     Active Substance: SIMVASTATIN
  5. CEFDINIR. [Suspect]
     Active Substance: CEFDINIR
     Indication: BRONCHITIS
     Route: 048
     Dates: start: 20160405, end: 20160410
  6. SUSTAIN [Concomitant]
  7. ALLERGY MED [Concomitant]
  8. WARFARIN [Concomitant]
     Active Substance: WARFARIN
  9. HEARTBURN [Concomitant]
  10. DILTIAZEM [Concomitant]
     Active Substance: DILTIAZEM

REACTIONS (3)
  - Dizziness [None]
  - Sedation [None]
  - Somnolence [None]

NARRATIVE: CASE EVENT DATE: 20160407
